FAERS Safety Report 16981609 (Version 1)
Quarter: 2019Q4

REPORT INFORMATION
  Report Type: Spontaneous
  Country: FR (occurrence: FR)
  Receive Date: 20191101
  Receipt Date: 20191101
  Transmission Date: 20200122
  Serious: Yes (Other)
  Sender: FDA-Public Use
  Company Number: FR-TEVA-2019-FR-1129915

PATIENT
  Age: 61 Year
  Sex: Female
  Weight: 80 kg

DRUGS (11)
  1. ARIPIPRAZOLE. [Suspect]
     Active Substance: ARIPIPRAZOLE
     Indication: PRODUCT USED FOR UNKNOWN INDICATION
     Route: 048
     Dates: end: 20190919
  2. METFORMINE [Concomitant]
     Active Substance: METFORMIN HYDROCHLORIDE
  3. CLOPIDOGREL (BESILATE DE) [Concomitant]
  4. NICOPATCH [Concomitant]
     Active Substance: NICOTINE
  5. LEVOTHYROX [Concomitant]
     Active Substance: LEVOTHYROXINE
  6. PRAZEPAM [Concomitant]
     Active Substance: PRAZEPAM
  7. NICOPASS [Concomitant]
     Active Substance: NICOTINE
  8. GLICLAZIDE [Concomitant]
     Active Substance: GLICLAZIDE
  9. BISOPROLOL (HEMIFUMARATE DE) [Concomitant]
     Active Substance: BISOPROLOL FUMARATE
  10. TRULICITY [Suspect]
     Active Substance: DULAGLUTIDE
     Indication: DIABETES MELLITUS
     Dosage: 1 DF PER 1WEEK
     Dates: start: 201806, end: 20190911
  11. ROSUVASTATINE [Concomitant]
     Active Substance: ROSUVASTATIN

REACTIONS (1)
  - Pancreatitis acute [Recovering/Resolving]

NARRATIVE: CASE EVENT DATE: 201909
